FAERS Safety Report 13373809 (Version 1)
Quarter: 2017Q1

REPORT INFORMATION
  Report Type: Report from Study
  Country: US (occurrence: US)
  Receive Date: 20170325
  Receipt Date: 20170325
  Transmission Date: 20170429
  Serious: Yes (Other)
  Sender: FDA-Public Use
  Company Number: US-AMGEN-USASL2017043156

PATIENT
  Age: 77 Year
  Sex: Female

DRUGS (1)
  1. REPATHA [Suspect]
     Active Substance: EVOLOCUMAB
     Indication: PRODUCT USED FOR UNKNOWN INDICATION
     Dosage: UNK
     Route: 065
     Dates: start: 201601

REACTIONS (6)
  - Back pain [Unknown]
  - Autoimmune disorder [Unknown]
  - Myalgia [Unknown]
  - Muscular weakness [Unknown]
  - Asthenia [Unknown]
  - Gallbladder operation [Unknown]

NARRATIVE: CASE EVENT DATE: 201610
